FAERS Safety Report 13734895 (Version 2)
Quarter: 2017Q3

REPORT INFORMATION
  Report Type: Spontaneous
  Country: IT (occurrence: IT)
  Receive Date: 20170710
  Receipt Date: 20170819
  Transmission Date: 20171127
  Serious: Yes (Hospitalization)
  Sender: FDA-Public Use
  Company Number: IT-ACCORD-053260

PATIENT
  Age: 61 Year
  Sex: Female
  Weight: 60 kg

DRUGS (2)
  1. FOLIC ACID. [Concomitant]
     Active Substance: FOLIC ACID
  2. IRINOTECAN [Suspect]
     Active Substance: IRINOTECAN
     Indication: BILIARY NEOPLASM
     Route: 042
     Dates: start: 20170613, end: 20170613

REACTIONS (6)
  - Parkinsonian crisis [Unknown]
  - Trismus [Recovering/Resolving]
  - Fall [Unknown]
  - Cardiac arrest [Recovering/Resolving]
  - Agitation [Unknown]
  - Off label use [Unknown]

NARRATIVE: CASE EVENT DATE: 20170613
